FAERS Safety Report 15612782 (Version 1)
Quarter: 2018Q4

REPORT INFORMATION
  Report Type: Spontaneous
  Country: US (occurrence: US)
  Receive Date: 20181113
  Receipt Date: 20181113
  Transmission Date: 20190205
  Serious: Yes (Hospitalization, Disabling)
  Sender: FDA-Public Use
  Company Number: US-JNJFOC-20181110351

PATIENT
  Age: 54 Year
  Sex: Female
  Weight: 90.1 kg

DRUGS (1)
  1. INVOKANA [Suspect]
     Active Substance: CANAGLIFLOZIN
     Indication: TYPE 2 DIABETES MELLITUS
     Route: 048
     Dates: start: 20160921, end: 201803

REACTIONS (7)
  - Cellulitis [Unknown]
  - Diabetic ulcer [Unknown]
  - Leg amputation [Unknown]
  - Osteomyelitis [Unknown]
  - Foot amputation [Unknown]
  - Gas gangrene [Unknown]
  - Septic shock [Unknown]

NARRATIVE: CASE EVENT DATE: 20180316
